FAERS Safety Report 6647842-X (Version None)
Quarter: 2010Q1

REPORT INFORMATION
  Report Type: 
  Country: None (occurrence: None)
  Receive Date: 20100324
  Receipt Date: 20100311
  Transmission Date: 20100710
  Serious: Yes (Hospitalization)
  Sender: FDA-Public Use
  Company Number: FR-BAYER-201017458GPV

PATIENT
  Age: 42 Year
  Sex: Female

DRUGS (2)
  1. BETAFERON [Suspect]
     Indication: MULTIPLE SCLEROSIS
     Dosage: FOR ABOUT THREE YEARS
     Route: 065
  2. BETAFERON [Suspect]
     Dosage: FOR MORE THAN TWO YEARS
     Route: 065

REACTIONS (5)
  - CALCINOSIS [None]
  - HYPOTHERMIA [None]
  - INJECTION SITE CELLULITIS [None]
  - INJECTION SITE INFECTION [None]
  - LIPODYSTROPHY ACQUIRED [None]
